FAERS Safety Report 5030547-9 (Version None)
Quarter: 2006Q2

REPORT INFORMATION
  Report Type: 
  Country: None (occurrence: None)
  Receive Date: 20060615
  Receipt Date: 20060604
  Transmission Date: 20061013
  Serious: Yes (Hospitalization)
  Sender: FDA-Public Use
  Company Number: 2006071679

PATIENT
  Age: 34 Year
  Sex: Female

DRUGS (1)
  1. UNISOM [Suspect]
     Indication: SLEEP DISORDER
     Dosage: 20 SLEEGELS ONCE, ORAL
     Route: 048
     Dates: start: 20060604, end: 20060604

REACTIONS (6)
  - INCORRECT DOSE ADMINISTERED [None]
  - LETHARGY [None]
  - MUSCLE TWITCHING [None]
  - SOMNOLENCE [None]
  - TREMOR [None]
  - VOMITING [None]
